FAERS Safety Report 18071984 (Version 1)
Quarter: 2020Q3

REPORT INFORMATION
  Report Type: Spontaneous
  Country: US (occurrence: US)
  Receive Date: 20200727
  Receipt Date: 20200727
  Transmission Date: 20201103
  Serious: No
  Sender: FDA-Public Use
  Company Number: US-PFIZER INC-2020284401

PATIENT
  Age: 64 Year
  Sex: Female
  Weight: 154.2 kg

DRUGS (1)
  1. IBRANCE [Suspect]
     Active Substance: PALBOCICLIB
     Indication: BREAST CANCER
     Dosage: 125 MG, CYCLIC (DAILY ON DAYS 1?21 EVERY 28 DAYS)
     Route: 048

REACTIONS (1)
  - Alopecia [Unknown]
